FAERS Safety Report 19417478 (Version 1)
Quarter: 2021Q2

REPORT INFORMATION
  Report Type: Report from Study
  Country: US (occurrence: US)
  Receive Date: 20210615
  Receipt Date: 20210615
  Transmission Date: 20210717
  Serious: Yes (Death)
  Sender: FDA-Public Use
  Company Number: US-ASTRAZENECA-2021A523406

PATIENT
  Age: 21843 Day
  Sex: Male

DRUGS (1)
  1. LYNPARZA [Suspect]
     Active Substance: OLAPARIB
     Indication: CHOLANGIOCARCINOMA
     Route: 048
     Dates: start: 20210508

REACTIONS (1)
  - Death [Fatal]

NARRATIVE: CASE EVENT DATE: 20210611
